FAERS Safety Report 11704100 (Version 1)
Quarter: 2015Q4

REPORT INFORMATION
  Report Type: Spontaneous
  Country: US (occurrence: None)
  Receive Date: 20151105
  Receipt Date: 20151105
  Transmission Date: 20160304
  Serious: No
  Sender: FDA-Public Use
  Company Number: None

PATIENT
  Sex: Male

DRUGS (1)
  1. SEROQUEL [Suspect]
     Active Substance: QUETIAPINE FUMARATE
     Indication: MENTAL DISORDER
     Route: 048
     Dates: start: 20141104, end: 20151104

REACTIONS (4)
  - Erectile dysfunction [None]
  - Anxiety [None]
  - Heart rate increased [None]
  - Penile size reduced [None]

NARRATIVE: CASE EVENT DATE: 20141104
